FAERS Safety Report 9063256 (Version 3)
Quarter: 2013Q2

REPORT INFORMATION
  Report Type: Spontaneous
  Country: JP (occurrence: JP)
  Receive Date: 20130213
  Receipt Date: 20130412
  Transmission Date: 20140414
  Serious: Yes (Hospitalization)
  Sender: FDA-Public Use
  Company Number: JP-GLAXOSMITHKLINE-B0866269A

PATIENT
  Age: 24 Year
  Sex: Female

DRUGS (3)
  1. LAMICTAL [Suspect]
     Indication: BIPOLAR I DISORDER
     Dosage: 25MG TWICE PER DAY
     Route: 048
     Dates: start: 20110817, end: 20111106
  2. LIMAS [Concomitant]
     Dosage: 200MG TWICE PER DAY
     Route: 048
     Dates: start: 2008, end: 20111106
  3. DEPAS [Concomitant]
     Indication: INSOMNIA
     Dosage: 1MG THREE TIMES PER DAY
     Route: 048
     Dates: start: 2008, end: 20111106

REACTIONS (5)
  - Stevens-Johnson syndrome [Recovered/Resolved with Sequelae]
  - Generalised erythema [Unknown]
  - Oral mucosa erosion [Unknown]
  - Rash [Recovering/Resolving]
  - Erythema [Not Recovered/Not Resolved]
